FAERS Safety Report 7616670-0 (Version None)
Quarter: 2011Q3

REPORT INFORMATION
  Report Type: 
  Country: None (occurrence: None)
  Receive Date: 20110717
  Receipt Date: 20110705
  Transmission Date: 20111222
  Serious: Yes (Other)
  Sender: FDA-Public Use
  Company Number: PHHY2009CA14632

PATIENT
  Sex: Female

DRUGS (3)
  1. SANDOSTATIN LAR [Suspect]
     Dosage: 40 MG, EVERY 4 WEEKS
     Route: 030
  2. SANDOSTATIN LAR [Suspect]
     Indication: CARCINOID TUMOUR
     Dosage: 30 MG, EVERY 4 WEEKS
     Route: 030
     Dates: start: 20080221
  3. SANDOSTATIN LAR [Suspect]
     Dosage: 60 MG, EVERY 4 WEEKS
     Route: 030

REACTIONS (2)
  - INJECTION SITE MASS [None]
  - DIARRHOEA [None]
